FAERS Safety Report 26139223 (Version 1)
Quarter: 2025Q4

REPORT INFORMATION
  Report Type: Spontaneous
  Country: US (occurrence: US)
  Receive Date: 20251210
  Receipt Date: 20251210
  Transmission Date: 20260118
  Serious: No
  Sender: AXSOME THERAPEUTICS
  Company Number: US-AXS-AXS202511-001970

PATIENT
  Age: 28 Year
  Sex: Male

DRUGS (2)
  1. AUVELITY [Suspect]
     Active Substance: BUPROPION HYDROCHLORIDE\DEXTROMETHORPHAN HYDROBROMIDE
     Indication: Major depression
     Route: 048
     Dates: start: 20251105
  2. AUVELITY [Suspect]
     Active Substance: BUPROPION HYDROCHLORIDE\DEXTROMETHORPHAN HYDROBROMIDE
     Route: 048

REACTIONS (9)
  - Feeling abnormal [Unknown]
  - Balance disorder [Unknown]
  - Feeling hot [Unknown]
  - Nausea [Unknown]
  - Dizziness [Recovered/Resolved]
  - Confusional state [Unknown]
  - Hyperhidrosis [Unknown]
  - Anxiety [Not Recovered/Not Resolved]
  - Vomiting [Unknown]

NARRATIVE: CASE EVENT DATE: 20251108
